FAERS Safety Report 7970162-8 (Version None)
Quarter: 2011Q4

REPORT INFORMATION
  Report Type: 
  Country: None (occurrence: None)
  Receive Date: 20111122
  Receipt Date: 20110824
  Transmission Date: 20120403
  Serious: Yes (Other)
  Sender: FDA-Public Use
  Company Number: PHHY2011US54763

PATIENT
  Age: 50 Year
  Sex: Female

DRUGS (10)
  1. ZANTAC [Concomitant]
  2. GILENYA [Suspect]
     Dosage: 0.5 MG, QD, ORAL
     Route: 048
  3. OMEPRAZOLE [Concomitant]
  4. LIPOGEN (CHOLINE, INOSITOL, VITAMINS NOS) [Concomitant]
  5. SOMA [Concomitant]
  6. BACLOFEN [Concomitant]
  7. PRESTQIE [Concomitant]
  8. B COMPLEX (NICOTINAMIDE, PYRIDOXINE HYDROCHLORIDE, RIBOFLAVIN, THIAMIN [Concomitant]
  9. FISH OIL [Concomitant]
  10. GRAPE JUICE (CITRUS X PARADISI JUICE) [Suspect]

REACTIONS (11)
  - ABDOMINAL DISTENSION [None]
  - PRODUCTIVE COUGH [None]
  - RHINORRHOEA [None]
  - HEADACHE [None]
  - SINUSITIS [None]
  - ORAL INFECTION [None]
  - FLATULENCE [None]
  - OROPHARYNGEAL PAIN [None]
  - NASAL CONGESTION [None]
  - ABDOMINAL DISCOMFORT [None]
  - BACK PAIN [None]
